FAERS Safety Report 9152930 (Version 1)
Quarter: 2013Q1

REPORT INFORMATION
  Report Type: Spontaneous
  Country: US (occurrence: US)
  Receive Date: 20130308
  Receipt Date: 20130308
  Transmission Date: 20140127
  Serious: Yes (Hospitalization)
  Sender: FDA-Public Use
  Company Number: US-RB-050733-13

PATIENT
  Age: 4 Year
  Sex: Male

DRUGS (2)
  1. DELSYM [Suspect]
     Indication: PRODUCT USED FOR UNKNOWN INDICATION
     Dosage: INGESTED A WHOLE BOTTLE
     Route: 048
     Dates: start: 20130222
  2. AMOXICILLIN [Concomitant]
     Indication: EAR INFECTION

REACTIONS (3)
  - Overdose [Recovered/Resolved]
  - Feeling abnormal [Recovered/Resolved]
  - Unevaluable event [Recovered/Resolved]
